FAERS Safety Report 6766148-1 (Version None)
Quarter: 2010Q2

REPORT INFORMATION
  Report Type: 
  Country: None (occurrence: None)
  Receive Date: 20100611
  Receipt Date: 20100602
  Transmission Date: 20101027
  Serious: Yes (Hospitalization)
  Sender: FDA-Public Use
  Company Number: US-ASTRAZENECA-2010SE25401

PATIENT
  Age: 65 Year
  Sex: Female
  Weight: 47.2 kg

DRUGS (3)
  1. SYMBICORT [Suspect]
     Dosage: 160 MCG, 2 PUFFS
     Route: 055
     Dates: start: 20100301
  2. SYMBICORT [Suspect]
     Dosage: 160 MCG, 1PUFFS
     Route: 055
  3. PREDNISONE [Concomitant]

REACTIONS (4)
  - BACK PAIN [None]
  - CHEST PAIN [None]
  - ILL-DEFINED DISORDER [None]
  - NERVOUSNESS [None]
